FAERS Safety Report 22105691 (Version 1)
Quarter: 2023Q1

REPORT INFORMATION
  Report Type: Report from Study
  Country: IT (occurrence: IT)
  Receive Date: 20230317
  Receipt Date: 20230317
  Transmission Date: 20230418
  Serious: Yes (Other)
  Sender: FDA-Public Use
  Company Number: IT-AUROBINDO-AUR-APL-2023-011788

PATIENT
  Age: 33 Year
  Sex: Female

DRUGS (12)
  1. DOCETAXEL [Suspect]
     Active Substance: DOCETAXEL
     Indication: Triple negative breast cancer
     Dosage: ONE CYCLE
     Route: 065
     Dates: start: 20190123
  2. DOXORUBICIN [Suspect]
     Active Substance: DOXORUBICIN
     Indication: Triple negative breast cancer
     Dosage: 30 MILLIGRAM/SQ. METER
     Route: 065
     Dates: start: 202002
  3. PACLITAXEL [Suspect]
     Active Substance: PACLITAXEL
     Indication: Triple negative breast cancer
     Dosage: 80 MILLIGRAM/SQ. METER, EVERY WEEK FOR 12 CYCLES
     Route: 065
     Dates: start: 201903, end: 201906
  4. VINORELBINE [Suspect]
     Active Substance: VINORELBINE TARTRATE
     Indication: Triple negative breast cancer
     Dosage: 20 MILLIGRAM/SQ. METER DAY 1 AND 3)
     Route: 065
  5. ADRIAMYCIN [Suspect]
     Active Substance: DOXORUBICIN HYDROCHLORIDE
     Indication: Triple negative breast cancer
     Dosage: 60 MILLIGRAM/SQ. METER
     Route: 065
  6. CAPECITABINE [Suspect]
     Active Substance: CAPECITABINE
     Indication: Triple negative breast cancer
     Dosage: 500 MILLIGRAM, 3 TIMES A DAY
     Route: 065
     Dates: start: 201911, end: 201912
  7. CISPLATIN [Suspect]
     Active Substance: CISPLATIN
     Indication: Triple negative breast cancer
     Dosage: 60 MILLIGRAM/SQ. METER (DAY 1)
     Route: 065
  8. CYCLOPHOSPHAMIDE [Suspect]
     Active Substance: CYCLOPHOSPHAMIDE
     Indication: Triple negative breast cancer
     Dosage: 600 MILLIGRAM/SQ. METER
     Route: 042
     Dates: start: 201901
  9. ERIBULIN [Suspect]
     Active Substance: ERIBULIN
     Indication: Triple negative breast cancer
     Dosage: 1.23 MILLIGRAM/SQ. METER FOR 2 CYCLES
     Route: 065
     Dates: start: 202001
  10. BEVACIZUMAB [Concomitant]
     Active Substance: BEVACIZUMAB
     Indication: Triple negative breast cancer
     Dosage: 15 MILLIGRAM/KILOGRAM EVERY 3 WEEKS IN MARCH
     Route: 065
  11. BEVACIZUMAB [Concomitant]
     Active Substance: BEVACIZUMAB
     Dosage: SECOND CYCLE W
     Route: 065
     Dates: start: 202003
  12. EVEROLIMUS [Concomitant]
     Active Substance: EVEROLIMUS
     Indication: Triple negative breast cancer
     Dosage: 7.5 MILLIGRAM, ONCE A DAY
     Route: 065
     Dates: start: 202002

REACTIONS (1)
  - Drug ineffective [Unknown]
